FAERS Safety Report 12436801 (Version 2)
Quarter: 2016Q4

REPORT INFORMATION
  Report Type: Spontaneous
  Country: JP (occurrence: JP)
  Receive Date: 20160606
  Receipt Date: 20161212
  Transmission Date: 20170207
  Serious: Yes (Other)
  Sender: FDA-Public Use
  Company Number: JP-BRISTOL-MYERS SQUIBB COMPANY-BMS-2016-032168

PATIENT
  Age: 22 Year
  Sex: Female
  Weight: 48 kg

DRUGS (1)
  1. SPRYCEL [Suspect]
     Active Substance: DASATINIB
     Indication: CHRONIC MYELOID LEUKAEMIA
     Dosage: 100 MG, QD
     Route: 048
     Dates: start: 20140826, end: 20160327

REACTIONS (2)
  - Abortion spontaneous [Unknown]
  - Maternal exposure during pregnancy [Recovered/Resolved]

NARRATIVE: CASE EVENT DATE: 201603
